FAERS Safety Report 10534555 (Version 2)
Quarter: 2014Q4

REPORT INFORMATION
  Report Type: Report from Study
  Country: IT (occurrence: IT)
  Receive Date: 20141022
  Receipt Date: 20141022
  Transmission Date: 20150529
  Serious: Yes (Hospitalization)
  Sender: FDA-Public Use
  Company Number: IT-GLAXOSMITHKLINE-B1004883A

PATIENT
  Age: 63 Year
  Sex: Female

DRUGS (8)
  1. LASIX [Concomitant]
     Active Substance: FUROSEMIDE
     Dates: start: 20130429
  2. BLINDED TRIAL MEDICATION [Suspect]
     Active Substance: INVESTIGATIONAL PRODUCT
     Indication: OVARIAN CANCER
     Dosage: LOADING DOSE 1 IN 21 DAYSLAST DOSE PRIOR TO SAE WAS 26 MAY 2014
     Route: 042
     Dates: start: 20140526
  3. TOPOTECAN HYDROCHLORIDE. [Suspect]
     Active Substance: TOPOTECAN HYDROCHLORIDE
     Indication: OVARIAN CANCER
     Dosage: DAY 1-5 EVERY 21 DAYSLAST DOSE PRIOR TO SAE  30 MAY 2014
     Route: 042
     Dates: start: 20140526
  4. FILGRASTIM [Concomitant]
     Active Substance: FILGRASTIM
     Dates: start: 20140503
  5. ALLOPURINOL. [Concomitant]
     Active Substance: ALLOPURINOL
     Dosage: 300 MG, UNK
     Dates: start: 20140423, end: 20140827
  6. LASIX [Concomitant]
     Active Substance: FUROSEMIDE
     Dates: start: 20140429
  7. SIMETHICONE [Concomitant]
     Active Substance: DIMETHICONE\SILICON DIOXIDE\SIMETHICONE
     Dosage: 40 MG, UNK
     Dates: start: 20140725, end: 20140827
  8. LUVION [Concomitant]
     Active Substance: CANRENONE
     Dates: start: 20130429

REACTIONS (1)
  - Febrile neutropenia [Recovered/Resolved]

NARRATIVE: CASE EVENT DATE: 20140531
